FAERS Safety Report 6698406-3 (Version None)
Quarter: 2010Q2

REPORT INFORMATION
  Report Type: 
  Country: None (occurrence: None)
  Receive Date: 20100427
  Receipt Date: 20100423
  Transmission Date: 20101027
  Serious: Yes (Hospitalization)
  Sender: FDA-Public Use
  Company Number: NL-ROCHE-668282

PATIENT
  Sex: Female

DRUGS (6)
  1. PEGINTERFERON ALFA-2A [Suspect]
     Route: 058
     Dates: start: 20090422, end: 20091015
  2. RIBAVIRIN [Suspect]
     Route: 048
     Dates: start: 20090422, end: 20090608
  3. RIBAVIRIN [Suspect]
     Route: 048
     Dates: start: 20090609, end: 20091001
  4. RIBAVIRIN [Suspect]
     Route: 048
     Dates: start: 20091006, end: 20091015
  5. ELTROMBOPAG [Suspect]
     Indication: THROMBOCYTOPENIA
     Route: 048
     Dates: start: 20090409, end: 20090421
  6. BLINDED ELTROMBOPAG [Suspect]
     Indication: THROMBOCYTOPENIA
     Dosage: DOSE BLINDED; FREQUENCY: DAILY
     Route: 048
     Dates: start: 20090422, end: 20091015

REACTIONS (1)
  - DISSEMINATED TUBERCULOSIS [None]
